FAERS Safety Report 9306851 (Version 1)
Quarter: 2013Q2

REPORT INFORMATION
  Report Type: Spontaneous
  Country: US (occurrence: US)
  Receive Date: 20130523
  Receipt Date: 20130523
  Transmission Date: 20140414
  Serious: Yes (Other)
  Sender: FDA-Public Use
  Company Number: CHPA2013US008516

PATIENT
  Sex: Male

DRUGS (2)
  1. BENEFIBER W/ WHEAT DEXTRIN [Suspect]
     Indication: NUTRITIONAL SUPPLEMENTATION
     Dosage: 3-4 TSP, QAM
     Route: 048
     Dates: start: 20071023
  2. MULTIVITAMIN//VITAMINS NOS [Concomitant]
     Indication: SUPPLEMENTATION THERAPY
     Dosage: UNK, UNK

REACTIONS (8)
  - Myocardial infarction [Recovered/Resolved]
  - Chest pain [Recovered/Resolved]
  - Unresponsive to stimuli [Recovered/Resolved]
  - Incisional hernia [Recovered/Resolved]
  - Hernia pain [Not Recovered/Not Resolved]
  - Fluid retention [Not Recovered/Not Resolved]
  - Therapeutic response unexpected [Unknown]
  - Incorrect dose administered [Unknown]
